FAERS Safety Report 14111389 (Version 1)
Quarter: 2017Q4

REPORT INFORMATION
  Report Type: Spontaneous
  Country: GB (occurrence: GB)
  Receive Date: 20171020
  Receipt Date: 20171020
  Transmission Date: 20180321
  Serious: Yes (Other)
  Sender: FDA-Public Use
  Company Number: GB-MYLANLABS-2017M1065319

PATIENT
  Age: 70 Year
  Sex: Female
  Weight: 64 kg

DRUGS (26)
  1. LAXIDO [Concomitant]
     Active Substance: POLYETHYLENE GLYCOL 3350\POTASSIUM CHLORIDE\SODIUM BICARBONATE\SODIUM CHLORIDE
     Dates: start: 20161021
  2. SENNA [Concomitant]
     Active Substance: SENNA LEAF\SENNOSIDES\SENNOSIDES A AND B
     Dosage: AT NIGHT.
     Dates: start: 20170906
  3. MORPHINE SULFATE. [Concomitant]
     Active Substance: MORPHINE SULFATE
     Dosage: 5-10ML TO BE TAKEN 4 TIMES DAILY.
     Dates: start: 20160127
  4. SODIUM DIHYDROGEN PHOSPHATE [Concomitant]
     Active Substance: SODIUM PHOSPHATE
     Dosage: IF BOWELS NOT OPENED IN 2-3 DAY...
     Dates: start: 20170920, end: 20170922
  5. ZOMORPH [Concomitant]
     Active Substance: MORPHINE SULFATE
     Dates: start: 20160824
  6. BETAMETHASONE VALERATE. [Concomitant]
     Active Substance: BETAMETHASONE VALERATE
     Dosage: 1 DF, BID
     Dates: start: 20161221
  7. CONOTRANE [Concomitant]
     Dates: start: 20170616
  8. DOMPERIDONE [Concomitant]
     Active Substance: DOMPERIDONE
     Dates: start: 20170926
  9. HYDROCORTISONE. [Concomitant]
     Active Substance: HYDROCORTISONE
     Dosage: TO GROINS FOR 2 WEEKS.
     Dates: start: 20170921
  10. MENTHOL. [Concomitant]
     Active Substance: MENTHOL
     Indication: DRY SKIN
     Dates: start: 20170913
  11. NEOMYCIN SULFATE. [Concomitant]
     Active Substance: NEOMYCIN SULFATE
     Dosage: INSIDE BOTH NOSTRILS.
     Dates: start: 20170905, end: 20170915
  12. PARACETAMOL [Concomitant]
     Active Substance: ACETAMINOPHEN
     Dates: start: 20161021
  13. CLOTRIMAZOLE. [Concomitant]
     Active Substance: CLOTRIMAZOLE
     Dates: start: 20170712, end: 20170920
  14. FEXOFENADINE [Concomitant]
     Active Substance: FEXOFENADINE\FEXOFENADINE HYDROCHLORIDE
     Dates: start: 20170510, end: 20170906
  15. MIRTAZAPINE. [Suspect]
     Active Substance: MIRTAZAPINE
     Indication: PRODUCT USED FOR UNKNOWN INDICATION
     Dates: start: 20170929
  16. HUMALOG [Concomitant]
     Active Substance: INSULIN LISPRO
     Dosage: 20 UNITS IN THE MORNING, 12 UNITS AT TEATIME.
     Dates: start: 20151015
  17. ADCAL [Concomitant]
     Active Substance: CALCIUM CARBONATE
     Dosage: 1 DF, BID
     Dates: start: 20170130
  18. GLUCOSE [Concomitant]
     Active Substance: DEXTROSE
     Indication: HYPOGLYCAEMIA
     Dates: start: 20161021
  19. LORATADINE. [Concomitant]
     Active Substance: LORATADINE
     Dates: start: 20170906
  20. METFORMIN [Concomitant]
     Active Substance: METFORMIN HYDROCHLORIDE
     Dates: start: 20161021
  21. AMITRIPTYLINE HYDROCHLORIDE. [Concomitant]
     Active Substance: AMITRIPTYLINE HYDROCHLORIDE
     Dosage: NIGHT.
     Dates: start: 20161021, end: 20170906
  22. OMEPRAZOLE. [Concomitant]
     Active Substance: OMEPRAZOLE
     Dates: start: 20161021
  23. SERTRALINE [Concomitant]
     Active Substance: SERTRALINE HYDROCHLORIDE
     Dosage: FOR THE NEXT 7 DAYS, THEN SWITCH...
     Dates: start: 20170201, end: 20170927
  24. ALENDRONIC ACID [Concomitant]
     Active Substance: ALENDRONIC ACID
     Dosage: SHOULD BE SWALLO...
     Dates: start: 20170130
  25. ATORVASTATIN [Concomitant]
     Active Substance: ATORVASTATIN
     Dosage: NIGHT.
     Dates: start: 20161021
  26. OCTENISAN [Concomitant]
     Dosage: WASH ENTIRE BODY AND HAIR/SCALP AS WASH/SHAMPOO FOR 5 DAYS.
     Dates: start: 20170905, end: 20170910

REACTIONS (2)
  - Personality disorder [Recovering/Resolving]
  - Personality change [Unknown]

NARRATIVE: CASE EVENT DATE: 20170929
